FAERS Safety Report 18423612 (Version 1)
Quarter: 2020Q4

REPORT INFORMATION
  Report Type: Spontaneous
  Country: BG (occurrence: BG)
  Receive Date: 20201024
  Receipt Date: 20201024
  Transmission Date: 20210114
  Serious: Yes (Hospitalization, Other)
  Sender: FDA-Public Use
  Company Number: BG-ACCORD-205737

PATIENT
  Age: 64 Year
  Sex: Male

DRUGS (4)
  1. FLUOROURACIL. [Suspect]
     Active Substance: FLUOROURACIL
     Indication: COLORECTAL ADENOCARCINOMA
     Route: 042
  2. BEVACIZUMAB. [Concomitant]
     Active Substance: BEVACIZUMAB
     Indication: ANTIANGIOGENIC THERAPY
  3. IRINOTECAN [Concomitant]
     Active Substance: IRINOTECAN
     Indication: COLORECTAL ADENOCARCINOMA
  4. FOLINIC ACID [Concomitant]
     Active Substance: LEUCOVORIN
     Indication: COLORECTAL ADENOCARCINOMA

REACTIONS (1)
  - Acute coronary syndrome [Recovered/Resolved]
